FAERS Safety Report 4686296-X (Version None)
Quarter: 2005Q2

REPORT INFORMATION
  Report Type: 
  Country: None (occurrence: None)
  Receive Date: 20050606
  Receipt Date: 20050524
  Transmission Date: 20051028
  Serious: Yes (Hospitalization)
  Sender: FDA-Public Use
  Company Number: 2005079398

PATIENT
  Age: 36 Year
  Sex: Male
  Weight: 87 kg

DRUGS (3)
  1. FELDENE [Suspect]
     Indication: RHEUMATIC FEVER
     Dosage: 20 MG (20 MG, 1 IN 1 D), ORAL
     Route: 048
     Dates: start: 20050324, end: 20050418
  2. VOLTAREN [Concomitant]
  3. BREXIN (PIROXICAM BETADEX) [Concomitant]

REACTIONS (1)
  - HEPATITIS TOXIC [None]
